FAERS Safety Report 4874833-1 (Version None)
Quarter: 2006Q1

REPORT INFORMATION
  Report Type: 
  Country: None (occurrence: None)
  Receive Date: 20060104
  Receipt Date: 20051220
  Transmission Date: 20060701
  Serious: Yes (Death, Other)
  Sender: FDA-Public Use
  Company Number: 2005170573

PATIENT
  Age: 57 Year
  Sex: Male
  Weight: 65.8 kg

DRUGS (9)
  1. ZYVOX [Suspect]
     Indication: BACTERAEMIA
     Dosage: 1200 MG (600 MG, BID) INTRAVENOUS
     Route: 042
     Dates: start: 20050728, end: 20050806
  2. TARGOCID [Concomitant]
  3. MODACIN (CEFTAZIDIME) [Concomitant]
  4. ALBUMIN (HUMAN) [Concomitant]
  5. LASIX [Concomitant]
  6. INSULIN [Concomitant]
  7. MIRACLID (ULINASTATIN) [Concomitant]
  8. VERAPAMIL HYDROCHLORIDE [Concomitant]
  9. HUMAN RED BLOOD CELLS [Concomitant]

REACTIONS (3)
  - CONDITION AGGRAVATED [None]
  - DISSEMINATED INTRAVASCULAR COAGULATION [None]
  - WHITE BLOOD CELL COUNT DECREASED [None]
